FAERS Safety Report 8856124 (Version 1)
Quarter: 2012Q4

REPORT INFORMATION
  Report Type: 
  Country: US (occurrence: US)
  Receive Date: 20121023
  Receipt Date: 20121023
  Transmission Date: 20130627
  Serious: No
  Sender: FDA-Public Use
  Company Number: US-AMGEN-USASP2012058094

PATIENT
  Sex: Female
  Weight: 82.54 kg

DRUGS (17)
  1. ENBREL [Suspect]
     Indication: RHEUMATOID ARTHRITIS
     Dosage: 50 mg, qwk
     Route: 058
  2. CALCIUM CARBONATE [Concomitant]
     Dosage: UNK
  3. CO Q 10                            /00517201/ [Concomitant]
     Dosage: UNK
  4. COSAMIN DS                         /06404301/ [Concomitant]
     Dosage: UNK
  5. DOXEPIN [Concomitant]
     Dosage: UNK
  6. FIBER [Concomitant]
     Dosage: UNK
  7. MELATONIN [Concomitant]
     Dosage: UNK
  8. MOBIC [Concomitant]
     Dosage: UNK
  9. MULTIVITAMINS [Concomitant]
     Dosage: UNK
  10. NECON                              /00013701/ [Concomitant]
     Dosage: UNK
  11. OMEGA 3                            /01334101/ [Concomitant]
     Dosage: UNK
  12. PLAQUENIL                          /00072602/ [Concomitant]
     Dosage: UNK
  13. SELENIUM [Concomitant]
     Dosage: UNK
  14. SYNTHROID [Concomitant]
     Dosage: UNK
  15. VIT B12 [Concomitant]
     Dosage: UNK
  16. VITAMIN E                          /00110501/ [Concomitant]
     Dosage: UNK
  17. VYVANSE [Concomitant]
     Dosage: UNK

REACTIONS (2)
  - Lumbar spinal stenosis [Unknown]
  - Fall [Unknown]
